FAERS Safety Report 10222560 (Version 1)
Quarter: 2014Q2

REPORT INFORMATION
  Report Type: Spontaneous
  Country: US (occurrence: US)
  Receive Date: 20140606
  Receipt Date: 20140606
  Transmission Date: 20141212
  Serious: No
  Sender: FDA-Public Use
  Company Number: US-MYLANLABS-2013S1024916

PATIENT
  Sex: Female
  Weight: 62.6 kg

DRUGS (7)
  1. DOXEPIN HYDROCHLORIDE CAPSULES, USP [Suspect]
     Indication: BACK DISORDER
     Route: 048
     Dates: start: 2000, end: 2003
  2. DOXEPIN HYDROCHLORIDE CAPSULES, USP [Suspect]
     Indication: BACK DISORDER
     Route: 048
     Dates: start: 2003, end: 20131006
  3. ARMOUR THYROID [Concomitant]
     Route: 048
     Dates: start: 2006
  4. ESTRADIOL [Concomitant]
     Route: 048
  5. TRAMADOL [Concomitant]
     Dosage: QNOON AND Q6PM
     Route: 048
  6. RESTORIL [Concomitant]
     Indication: INSOMNIA
     Route: 048
  7. HALCION [Concomitant]
     Indication: INSOMNIA

REACTIONS (36)
  - Drug withdrawal syndrome [Not Recovered/Not Resolved]
  - Hypoaesthesia [Not Recovered/Not Resolved]
  - Paraesthesia [Not Recovered/Not Resolved]
  - Pain in extremity [Not Recovered/Not Resolved]
  - Asthenia [Not Recovered/Not Resolved]
  - Heart rate increased [Not Recovered/Not Resolved]
  - Arrhythmia [Not Recovered/Not Resolved]
  - Palpitations [Not Recovered/Not Resolved]
  - Abdominal pain upper [Not Recovered/Not Resolved]
  - Agitation [Not Recovered/Not Resolved]
  - Anxiety [Not Recovered/Not Resolved]
  - Vision blurred [Not Recovered/Not Resolved]
  - Burning sensation [Not Recovered/Not Resolved]
  - Formication [Not Recovered/Not Resolved]
  - Pruritus [Not Recovered/Not Resolved]
  - Chills [Not Recovered/Not Resolved]
  - Dysphonia [Not Recovered/Not Resolved]
  - Dyspnoea [Not Recovered/Not Resolved]
  - Depressed mood [Not Recovered/Not Resolved]
  - Heart rate irregular [Not Recovered/Not Resolved]
  - Fatigue [Not Recovered/Not Resolved]
  - Balance disorder [Recovering/Resolving]
  - Incontinence [Not Recovered/Not Resolved]
  - Back pain [Not Recovered/Not Resolved]
  - Flank pain [Not Recovered/Not Resolved]
  - Dyskinesia [Not Recovered/Not Resolved]
  - Mental status changes [Not Recovered/Not Resolved]
  - Suicidal ideation [Not Recovered/Not Resolved]
  - Abulia [Not Recovered/Not Resolved]
  - Musculoskeletal stiffness [Not Recovered/Not Resolved]
  - Erythema [Recovered/Resolved]
  - Tinnitus [Not Recovered/Not Resolved]
  - Gait disturbance [Not Recovered/Not Resolved]
  - Abdominal distension [Not Recovered/Not Resolved]
  - Alopecia [Recovering/Resolving]
  - Rash [Recovered/Resolved]
